FAERS Safety Report 6895039-0 (Version None)
Quarter: 2010Q3

REPORT INFORMATION
  Report Type: 
  Country: None (occurrence: None)
  Receive Date: 20100727
  Receipt Date: 20100715
  Transmission Date: 20110219
  Serious: Yes (Disabling, Other)
  Sender: FDA-Public Use
  Company Number: 2010MA000920

PATIENT
  Age: 84 Year
  Sex: Male

DRUGS (9)
  1. DOXAZOSIN MESYLATE [Suspect]
     Indication: BLOOD PRESSURE INCREASED
     Dosage: 2 MG;PO
     Route: 048
     Dates: start: 20090803, end: 20100319
  2. RAMIPRIL [Concomitant]
  3. LATANOPROST [Concomitant]
  4. TIMOLOL MALEATE [Concomitant]
  5. PARACETAMOL [Concomitant]
  6. ADALAT [Concomitant]
  7. MAXIDEX [Concomitant]
  8. CYCLOPENTOLATE HCL [Concomitant]
  9. PREV MEDS [Concomitant]

REACTIONS (2)
  - FLOPPY IRIS SYNDROME [None]
  - VISUAL IMPAIRMENT [None]
